FAERS Safety Report 7965576-6 (Version None)
Quarter: 2011Q4

REPORT INFORMATION
  Report Type: 
  Country: None (occurrence: None)
  Receive Date: 20111206
  Receipt Date: 20111206
  Transmission Date: 20120403
  Serious: Yes (Hospitalization)
  Sender: FDA-Public Use
  Company Number: None

PATIENT
  Age: 16 Year
  Sex: Male

DRUGS (2)
  1. NERVE TONIC [Suspect]
  2. DRAMAMINE [Suspect]

REACTIONS (2)
  - INCORRECT DOSE ADMINISTERED [None]
  - ADVERSE EVENT [None]
